FAERS Safety Report 5344125-5 (Version None)
Quarter: 2007Q2

REPORT INFORMATION
  Report Type: 
  Country: None (occurrence: None)
  Receive Date: 20070531
  Receipt Date: 20070531
  Transmission Date: 20071010
  Serious: Yes (Hospitalization)
  Sender: FDA-Public Use
  Company Number: None

PATIENT
  Age: 61 Year
  Sex: Male
  Weight: 99 kg

DRUGS (21)
  1. WARFARIN SODIUM [Suspect]
     Indication: DEEP VEIN THROMBOSIS
     Dosage: 2.5MG DAILY PO
     Route: 048
     Dates: start: 20051201, end: 20061107
  2. ACETAMINOPHEN [Concomitant]
  3. ALBUTEROL 90/IPRATROP 18MCG [Concomitant]
  4. ALBUTEROL [Concomitant]
  5. AMMONIUM LACTATE 12% [Concomitant]
  6. ATENOLOL [Concomitant]
  7. BISACODYL [Concomitant]
  8. CAPSAICIN [Concomitant]
  9. DARBEPOETIN ALFA [Concomitant]
  10. FERROUS SULFATE [Concomitant]
  11. HYDROMORPHONE HCL [Concomitant]
  12. NPH ILETIN II [Concomitant]
  13. MEGESTROL ACETATE [Concomitant]
  14. METRONIDAZOLE [Concomitant]
  15. MULTI-VITAMIN [Concomitant]
  16. OMEPRAZOLE [Concomitant]
  17. PREDNISOLONE ACETATE [Concomitant]
  18. SENNOSIDES [Concomitant]
  19. SERTRALINE [Concomitant]
  20. SODIUM BICARBONATE [Concomitant]
  21. SODIUM POLYSTYRENE SULF [Concomitant]

REACTIONS (1)
  - DEEP VEIN THROMBOSIS [None]
